FAERS Safety Report 5664992-5 (Version None)
Quarter: 2008Q1

REPORT INFORMATION
  Report Type: 
  Country: None (occurrence: None)
  Receive Date: 20080314
  Receipt Date: 20080302
  Transmission Date: 20080703
  Serious: Yes (Other)
  Sender: FDA-Public Use
  Company Number: GR-PFIZER INC-2008019384

PATIENT
  Age: 33 Year
  Sex: Male

DRUGS (6)
  1. ZITHROMAX [Suspect]
     Indication: PYREXIA
     Route: 048
     Dates: start: 20080206, end: 20080206
  2. MELOXICAM [Suspect]
     Indication: PYREXIA
     Dates: start: 20080206, end: 20080206
  3. CIPROXIN [Concomitant]
     Indication: PYREXIA
     Route: 048
     Dates: start: 20080208, end: 20080209
  4. DEPON [Concomitant]
     Indication: PYREXIA
     Route: 048
     Dates: start: 20080208, end: 20080209
  5. LYRICA [Concomitant]
  6. ZOLOFT [Concomitant]

REACTIONS (2)
  - DRUG ERUPTION [None]
  - SKIN LESION [None]
